FAERS Safety Report 10015595 (Version 2)
Quarter: 2014Q4

REPORT INFORMATION
  Report Type: Spontaneous
  Country: US (occurrence: US)
  Receive Date: 20140317
  Receipt Date: 20141107
  Transmission Date: 20150528
  Serious: Yes (Hospitalization, Disabling)
  Sender: FDA-Public Use
  Company Number: US-BAYER-2014-039184

PATIENT
  Age: 26 Year
  Sex: Female
  Weight: 77.98 kg

DRUGS (1)
  1. MIRENA [Suspect]
     Active Substance: LEVONORGESTREL
     Indication: CONTRACEPTION
     Dosage: 20 MCG/24HR, CONT
     Route: 015
     Dates: start: 200803, end: 2010

REACTIONS (13)
  - Uterine perforation [None]
  - Abdominal pain lower [None]
  - Marital problem [None]
  - Depression [None]
  - Ovarian cyst [None]
  - Off label use [None]
  - Pain [None]
  - Vaginal haemorrhage [None]
  - Injury [None]
  - Balance disorder [None]
  - Anxiety [None]
  - Menorrhagia [None]
  - Emotional distress [None]

NARRATIVE: CASE EVENT DATE: 2008
